FAERS Safety Report 7581000-X (Version None)
Quarter: 2011Q2

REPORT INFORMATION
  Report Type: 
  Country: None (occurrence: None)
  Receive Date: 20110629
  Receipt Date: 20110620
  Transmission Date: 20111010
  Serious: Yes (Other)
  Sender: FDA-Public Use
  Company Number: US-ASTRAZENECA-2011SE37470

PATIENT
  Age: 13857 Day

DRUGS (1)
  1. NEXIUM [Suspect]
     Route: 048

REACTIONS (5)
  - LUNG DISORDER [None]
  - PNEUMONIA STREPTOCOCCAL [None]
  - CHOLELITHIASIS [None]
  - BACK PAIN [None]
  - GALLBLADDER OPERATION [None]
